FAERS Safety Report 6109464-9 (Version None)
Quarter: 2009Q1

REPORT INFORMATION
  Report Type: 
  Country: None (occurrence: None)
  Receive Date: 20090310
  Receipt Date: 20090303
  Transmission Date: 20090719
  Serious: Yes (Other)
  Sender: FDA-Public Use
  Company Number: JP-WYE-H08032809

PATIENT
  Sex: Male
  Weight: 7.23 kg

DRUGS (4)
  1. ZOSYN [Suspect]
     Indication: PROPHYLAXIS URINARY TRACT INFECTION
     Route: 041
     Dates: start: 20090115, end: 20090117
  2. INOVAN [Concomitant]
     Indication: HEART DISEASE CONGENITAL
     Dosage: UNKNOWN
     Route: 041
     Dates: start: 20090115
  3. LASIX [Concomitant]
     Indication: HEART DISEASE CONGENITAL
     Route: 041
     Dates: start: 20090115
  4. GASTER [Concomitant]
     Indication: PROPHYLAXIS AGAINST GASTROINTESTINAL ULCER
     Route: 041
     Dates: start: 20090115

REACTIONS (2)
  - DIARRHOEA [None]
  - URINE OUTPUT DECREASED [None]
